FAERS Safety Report 17594878 (Version 6)
Quarter: 2021Q4

REPORT INFORMATION
  Report Type: Report from Study
  Country: US (occurrence: US)
  Receive Date: 20200328
  Receipt Date: 20211109
  Transmission Date: 20220303
  Serious: Yes (Hospitalization)
  Sender: FDA-Public Use
  Company Number: None

PATIENT
  Age: 83 Year
  Sex: Male
  Weight: 91 kg

DRUGS (4)
  1. NAPORAFENIB [Suspect]
     Active Substance: NAPORAFENIB
     Indication: Malignant melanoma
     Dosage: 200 MG, BID
     Route: 048
     Dates: start: 20200302
  2. NAPORAFENIB [Suspect]
     Active Substance: NAPORAFENIB
     Dosage: 200 MG, BID
     Route: 048
     Dates: start: 20200408
  3. MEKINIST [Suspect]
     Active Substance: TRAMETINIB DIMETHYL SULFOXIDE
     Indication: Malignant melanoma
     Dosage: 1 MG, BID
     Route: 048
     Dates: start: 20200302
  4. MEKINIST [Suspect]
     Active Substance: TRAMETINIB DIMETHYL SULFOXIDE
     Dosage: 1 MG, BID
     Route: 048
     Dates: start: 20200408

REACTIONS (2)
  - Pneumonitis [Recovered/Resolved]
  - Urinary tract infection [Not Recovered/Not Resolved]

NARRATIVE: CASE EVENT DATE: 20200319
